FAERS Safety Report 8313146-2 (Version None)
Quarter: 2012Q2

REPORT INFORMATION
  Report Type: 
  Country: None (occurrence: None)
  Receive Date: 20120424
  Receipt Date: 20120411
  Transmission Date: 20120825
  Serious: Yes (Hospitalization)
  Sender: FDA-Public Use
  Company Number: 1255737

PATIENT
  Age: 55 Year
  Sex: Male
  Weight: 92 kg

DRUGS (15)
  1. (FAMVIR  /01226201/) [Concomitant]
  2. ATIVAN [Concomitant]
  3. ZEVALIN [Suspect]
     Indication: MULTIPLE MYELOMA
     Dosage: 4.6 MCI, SINGLE, INTRAVENOUS (NOT OTHERWISE SPECIFIED)
     Route: 042
     Dates: start: 20110503, end: 20110503
  4. CEFEPIME [Suspect]
     Indication: PYREXIA
     Dosage: 2 G, TID, INTRAVENOUS (NOT OTHERWISE SPECIFIED)
     Route: 042
     Dates: start: 20110603, end: 20110606
  5. RITUXAN [Suspect]
     Indication: MULTIPLE MYELOMA
     Dosage: 200 MG, SINGLE
     Dates: start: 20110512, end: 20110512
  6. ALLOPURINOL [Concomitant]
  7. MEROPENEM [Suspect]
     Indication: PYREXIA
     Dosage: 1 G, QD, INTRAVENOUS (NOT OTHERWISE SPECIFIED)
     Route: 042
     Dates: start: 20110606, end: 20110618
  8. COLCHICINE [Concomitant]
  9. NEURONTIN [Concomitant]
  10. DILAUDID [Concomitant]
  11. METRONIDAZOLE [Suspect]
     Indication: PROPHYLAXIS
     Dosage: 500 MG, TID, ORAL
     Route: 048
     Dates: start: 20110604, end: 20110605
  12. SEROQUEL [Concomitant]
  13. ASPIRIN [Concomitant]
  14. FENTANYL CITRATE [Concomitant]
  15. ATENOLOL [Concomitant]

REACTIONS (12)
  - FEBRILE NEUTROPENIA [None]
  - PERIRECTAL ABSCESS [None]
  - HAEMATOCRIT DECREASED [None]
  - HYPOPHAGIA [None]
  - DIARRHOEA [None]
  - RASH MACULAR [None]
  - HAEMOGLOBIN DECREASED [None]
  - CATHETER SITE ERYTHEMA [None]
  - WHITE BLOOD CELL COUNT DECREASED [None]
  - STEM CELL TRANSPLANT [None]
  - CATHETER SITE RELATED REACTION [None]
  - TOXICITY TO VARIOUS AGENTS [None]
